FAERS Safety Report 7324523-0 (Version None)
Quarter: 2011Q1

REPORT INFORMATION
  Report Type: 
  Country: None (occurrence: None)
  Receive Date: 20110203
  Receipt Date: 20101112
  Transmission Date: 20110831
  Serious: Yes (Hospitalization)
  Sender: FDA-Public Use
  Company Number: 021970

PATIENT
  Sex: Male
  Weight: 57.6 kg

DRUGS (3)
  1. KEPPRA [Suspect]
     Indication: CONVULSION
     Dosage: (3000 MG BID ORAL)
     Route: 048
     Dates: start: 20060101
  2. ZONEGRAN [Suspect]
     Indication: CONVULSION
     Dosage: (300 MG BID ORAL)
     Route: 048
     Dates: start: 20060101
  3. LAMICTAL [Concomitant]

REACTIONS (1)
  - CONVULSION [None]
